FAERS Safety Report 24354333 (Version 5)
Quarter: 2025Q4

REPORT INFORMATION
  Report Type: Report from Study
  Country: CN (occurrence: CN)
  Receive Date: 20240923
  Receipt Date: 20251226
  Transmission Date: 20260117
  Serious: Yes (Hospitalization, Other)
  Sender: Vantive US Healthcare
  Company Number: CN-VANTIVE-2024VAN019797

PATIENT
  Age: 55 Year
  Sex: Female
  Weight: 51.7 kg

DRUGS (16)
  1. DIANEAL [Suspect]
     Active Substance: CALCIUM CHLORIDE\DEXTROSE\MAGNESIUM CHLORIDE\SODIUM CHLORIDE\SODIUM LACTATE
     Indication: Chronic kidney disease
     Dosage: 2L, 4 BAGS PER DAY (QID) (DOSE INCREASED)
     Dates: start: 20240913, end: 20240924
  2. DIANEAL [Suspect]
     Active Substance: CALCIUM CHLORIDE\DEXTROSE\MAGNESIUM CHLORIDE\SODIUM CHLORIDE\SODIUM LACTATE
     Dosage: 2L, 3 BAGS PER DAY, TOTAL 6L PER DAY
     Dates: start: 20240802, end: 20240912
  3. EXTRANEAL [Suspect]
     Active Substance: CALCIUM CHLORIDE\ICODEXTRIN\MAGNESIUM CHLORIDE\SODIUM CHLORIDE\SODIUM LACTATE
     Indication: Chronic kidney disease
     Dosage: 2 LITERS, 1 BAG PER DAY
     Dates: start: 20240802, end: 20240912
  4. SACUBITRIL\VALSARTAN [Concomitant]
     Active Substance: SACUBITRIL\VALSARTAN
     Indication: Hypertension
     Dosage: 100MG, TWICE A DAY (BID)
  5. NIFEDIPINE [Concomitant]
     Active Substance: NIFEDIPINE
     Indication: Hypertension
     Dosage: 60 MG ONCE DAILY (QD)
  6. TERAZOSIN HYDROCHLORIDE [Concomitant]
     Active Substance: TERAZOSIN HYDROCHLORIDE
     Indication: Hypertension
     Dosage: 4MG ONCE DAILY (QD)
  7. METOPROLOL SUCCINATE [Concomitant]
     Active Substance: METOPROLOL SUCCINATE
     Indication: Hypertension
     Dosage: 47.5MG, ONCE DAILY (QD)
  8. ESTAZOLAM [Concomitant]
     Active Substance: ESTAZOLAM
     Indication: Sleep disorder
     Dosage: 1MG ONCE DAILY (QD)
  9. CALCITRIOL [Concomitant]
     Active Substance: CALCITRIOL
     Indication: Hyperparathyroidism secondary
     Dosage: 0.25UG, ONCE DAILY
  10. ATORVASTATIN CALCIUM [Concomitant]
     Active Substance: ATORVASTATIN CALCIUM
     Indication: Hyperlipidaemia
     Dosage: 20MG, ONCE DAILY (QD)
  11. LOSARTAN POTASSIUM [Concomitant]
     Active Substance: LOSARTAN POTASSIUM
     Indication: Hypertension
     Dosage: UNK
  12. ERYTHROPOIETIN [Concomitant]
     Active Substance: ERYTHROPOIETIN
     Indication: Myelosuppression
  13. SEVELAMER CARBONATE [Concomitant]
     Active Substance: SEVELAMER CARBONATE
     Indication: Hyperphosphataemia
     Dosage: 0.8G THREE TIMES A DAY (TID)
  14. ERYTHROPOIETIN [Concomitant]
     Active Substance: ERYTHROPOIETIN
     Indication: Nephrogenic anaemia
     Dosage: 10000 UNIT, WEEKLY
  15. FOLIC ACID [Concomitant]
     Active Substance: FOLIC ACID
     Indication: Nutritional supplementation
     Dosage: 5MG, ONCE A DAY (QD)
  16. FUROSEMIDE [Concomitant]
     Active Substance: FUROSEMIDE
     Indication: Oedema
     Dosage: 20MG, THREE TIMES A DAY (TID)

REACTIONS (13)
  - Peritoneal dialysis complication [Recovered/Resolved]
  - Small intestinal obstruction [Unknown]
  - Pneumoperitoneum [Recovered/Resolved]
  - Intestinal obstruction [Unknown]
  - Peritonitis [Recovered/Resolved]
  - Abdominal pain [Recovered/Resolved]
  - Peritoneal cloudy effluent [Recovered/Resolved]
  - Abdominal discomfort [Unknown]
  - Peritonitis [Recovering/Resolving]
  - Peritoneal cloudy effluent [Recovering/Resolving]
  - Abdominal pain [Recovering/Resolving]
  - Bowel movement irregularity [Recovered/Resolved]
  - Candida infection [Recovering/Resolving]

NARRATIVE: CASE EVENT DATE: 20240911
